FAERS Safety Report 5848470-6 (Version None)
Quarter: 2008Q3

REPORT INFORMATION
  Report Type: 
  Country: None (occurrence: None)
  Receive Date: 20080818
  Receipt Date: 20080805
  Transmission Date: 20090109
  Serious: Yes (Other)
  Sender: FDA-Public Use
  Company Number: DE-ELI_LILLY_AND_COMPANY-DE200808001020

PATIENT
  Age: 62 Year
  Sex: Female

DRUGS (1)
  1. GEMZAR [Suspect]
     Dosage: 1000 MG/QM
     Route: 065
     Dates: start: 20080228

REACTIONS (1)
  - RHABDOMYOLYSIS [None]
